FAERS Safety Report 15201246 (Version 1)
Quarter: 2018Q3

REPORT INFORMATION
  Report Type: Spontaneous
  Country: IL (occurrence: IL)
  Receive Date: 20180627
  Receipt Date: 20180627
  Transmission Date: 20181010
  Serious: Yes (Hospitalization)
  Sender: FDA-Public Use
  Company Number: None

PATIENT
  Age: 44 Year
  Sex: Male
  Weight: 75 kg

DRUGS (16)
  1. COMBIVIR [Concomitant]
     Active Substance: LAMIVUDINE\ZIDOVUDINE
  2. VIREAD [Concomitant]
     Active Substance: TENOFOVIR DISOPROXIL FUMARATE
  3. VIRAMUNE [Concomitant]
     Active Substance: NEVIRAPINE
  4. LITHIUM CARBONATE. [Concomitant]
     Active Substance: LITHIUM CARBONATE
  5. HEMOFIL M [Concomitant]
     Active Substance: ANTIHEMOPHILIC FACTOR HUMAN
  6. DEPREXAN [Concomitant]
     Active Substance: DESIPRAMINE
  7. EVIPLERA [Concomitant]
     Active Substance: EMTRICITABINE\RILPIVIRINE\TENOFOVIR DISOPROXIL FUMARATE
  8. ZYPREXA [Concomitant]
     Active Substance: OLANZAPINE
  9. EPCLUSA [Suspect]
     Active Substance: SOFOSBUVIR\VELPATASVIR
     Indication: HEPATITIS C
     Route: 048
     Dates: start: 20170327, end: 20170619
  10. ENALAPRIL [Concomitant]
     Active Substance: ENALAPRIL
  11. IKAPRESS SR [Concomitant]
  12. JANUET XR [Concomitant]
     Active Substance: METFORMIN HYDROCHLORIDE\SITAGLIPTIN PHOSPHATE
  13. NEVIRAPIN [Concomitant]
     Active Substance: NEVIRAPINE
  14. DISOTHIAZIDE [Concomitant]
     Active Substance: HYDROCHLOROTHIAZIDE
  15. DOLUTEGRAVIR [Concomitant]
     Active Substance: DOLUTEGRAVIR
  16. PROZAC [Concomitant]
     Active Substance: FLUOXETINE HYDROCHLORIDE

REACTIONS (5)
  - Abdominal pain [None]
  - Retroperitoneal haematoma [None]
  - Intrapartum haemorrhage [None]
  - Haemophilia [None]
  - Dizziness [None]

NARRATIVE: CASE EVENT DATE: 20170712
